FAERS Safety Report 11645263 (Version 1)
Quarter: 2015Q4

REPORT INFORMATION
  Report Type: Report from Study
  Country: DE (occurrence: DE)
  Receive Date: 20151020
  Receipt Date: 20151020
  Transmission Date: 20160304
  Serious: Yes (Death, Life-Threatening, Hospitalization)
  Sender: FDA-Public Use
  Company Number: DE-TEVA-599964ISR

PATIENT
  Age: 44 Year
  Sex: Male
  Weight: 96.2 kg

DRUGS (3)
  1. FLUDARABINE [Suspect]
     Active Substance: FLUDARABINE PHOSPHATE
     Dosage: 68 MILLIGRAM DAILY;
     Dates: start: 20150827, end: 20150829
  2. THIOTEPA. [Suspect]
     Active Substance: THIOTEPA
     Dosage: 475 MILLIGRAM DAILY;
     Dates: start: 20150827, end: 20150829
  3. TREOSULFAN [Suspect]
     Active Substance: TREOSULFAN
     Dosage: 27 GRAM DAILY;
     Dates: start: 20150830, end: 20150901

REACTIONS (2)
  - Encephalopathy [Not Recovered/Not Resolved]
  - Sepsis [Fatal]

NARRATIVE: CASE EVENT DATE: 20150906
